FAERS Safety Report 17647130 (Version 1)
Quarter: 2020Q2

REPORT INFORMATION
  Report Type: Report from Study
  Country: US (occurrence: US)
  Receive Date: 20200408
  Receipt Date: 20200408
  Transmission Date: 20200713
  Serious: No
  Sender: FDA-Public Use
  Company Number: US-BIOVITRUM-2019US3312

PATIENT
  Age: 74 Year
  Sex: Female

DRUGS (23)
  1. GLYCOLAX [Concomitant]
     Active Substance: POLYETHYLENE GLYCOL 3350
  2. ALLOPURINOL. [Concomitant]
     Active Substance: ALLOPURINOL
  3. MAGNESIUM OXIDE. [Concomitant]
     Active Substance: MAGNESIUM OXIDE
  4. MULTIVITAMINS [Concomitant]
     Active Substance: VITAMINS
  5. LIDODERM [Concomitant]
     Active Substance: LIDOCAINE
  6. OXYCODONE [Concomitant]
     Active Substance: OXYCODONE
  7. BUTRANS [Concomitant]
     Active Substance: BUPRENORPHINE
  8. LOPRESSOR [Concomitant]
     Active Substance: METOPROLOL TARTRATE
  9. TYLENOL [Concomitant]
     Active Substance: ACETAMINOPHEN
  10. COLCHICINE. [Concomitant]
     Active Substance: COLCHICINE
  11. MEDROL [Concomitant]
     Active Substance: METHYLPREDNISOLONE
  12. MUPIROCIN. [Concomitant]
     Active Substance: MUPIROCIN
  13. KLONOPIN [Concomitant]
     Active Substance: CLONAZEPAM
  14. KLOR-CON [Concomitant]
     Active Substance: POTASSIUM CHLORIDE
  15. KINERET [Suspect]
     Active Substance: ANAKINRA
     Indication: RHEUMATOID ARTHRITIS
     Route: 058
     Dates: start: 20190907
  16. ATORVASTATIN [Concomitant]
     Active Substance: ATORVASTATIN
  17. MEDICAL MARIJUANA [Concomitant]
     Active Substance: CANNABIS SATIVA SUBSP. INDICA TOP
  18. PURINETHOL [Concomitant]
     Active Substance: MERCAPTOPURINE
  19. ROBAXIN [Concomitant]
     Active Substance: METHOCARBAMOL
  20. MYSOLINE [Concomitant]
     Active Substance: PRIMIDONE
  21. ATROVENT [Concomitant]
     Active Substance: IPRATROPIUM BROMIDE
  22. XOPONEX [Concomitant]
  23. PROTONIX [Concomitant]
     Active Substance: PANTOPRAZOLE SODIUM

REACTIONS (6)
  - Rash [Unknown]
  - Injection site erythema [Unknown]
  - Injection site urticaria [Unknown]
  - Oropharyngeal pain [Unknown]
  - Injection site pruritus [Unknown]
  - Arthritis [Unknown]

NARRATIVE: CASE EVENT DATE: 20190920
